FAERS Safety Report 9129053 (Version 1)
Quarter: 2013Q1

REPORT INFORMATION
  Report Type: Spontaneous
  Country: US (occurrence: US)
  Receive Date: 20130125
  Receipt Date: 20130125
  Transmission Date: 20140127
  Serious: No
  Sender: FDA-Public Use
  Company Number: US-BRACCO-008887

PATIENT
  Age: 58 Year
  Sex: Female
  Weight: 82 kg

DRUGS (6)
  1. MULTIHANCE [Suspect]
     Indication: NUCLEAR MAGNETIC RESONANCE IMAGING BRAIN
     Route: 042
     Dates: start: 20121031, end: 20121031
  2. MULTIHANCE [Suspect]
     Indication: NODULE
     Route: 042
     Dates: start: 20121031, end: 20121031
  3. PAXIL [Concomitant]
  4. NEUROTIN [Concomitant]
  5. ANTI-ASTHMATICS [Concomitant]
  6. INDERAL [Concomitant]

REACTIONS (2)
  - Erythema [Recovered/Resolved]
  - Pruritus [Recovered/Resolved]
